FAERS Safety Report 9154094 (Version 1)
Quarter: 2013Q1

REPORT INFORMATION
  Report Type: Spontaneous
  Country: US (occurrence: None)
  Receive Date: 20130306
  Receipt Date: 20130306
  Transmission Date: 20140127
  Serious: No
  Sender: FDA-Public Use
  Company Number: None

PATIENT
  Age: 81 Year
  Sex: Male
  Weight: 46.72 kg

DRUGS (2)
  1. CARVEDILOC ALPHA BETA BLOCKER [Suspect]
     Indication: HYPERTENSION
     Route: 048
     Dates: start: 20130115
  2. LISINOPRIL ACE INHIBITOR [Suspect]
     Route: 048
     Dates: start: 20130115

REACTIONS (3)
  - Insomnia [None]
  - Thyroid disorder [None]
  - Hypersensitivity [None]
